FAERS Safety Report 10132461 (Version 1)
Quarter: 2014Q2

REPORT INFORMATION
  Report Type: Spontaneous
  Country: US (occurrence: US)
  Receive Date: 20140428
  Receipt Date: 20140428
  Transmission Date: 20141212
  Serious: Yes (Hospitalization)
  Sender: FDA-Public Use
  Company Number: US-BAYER-2014-059543

PATIENT
  Age: 31 Year
  Sex: Female
  Weight: 86.17 kg

DRUGS (7)
  1. YAZ [Suspect]
  2. YASMIN [Suspect]
  3. METHYLPREDNISOLONE [Concomitant]
     Indication: DERMATITIS CONTACT
     Dosage: 4 MG, UNK
     Route: 048
     Dates: start: 20060908
  4. HYDROXYZINE PAMOATE [Concomitant]
     Indication: PRURITUS
     Dosage: 25 MG, UNK
     Route: 048
     Dates: start: 20060908
  5. PROAIR HFA [Concomitant]
     Dosage: TWO PUFFS [FOUR TIMES/DAY]
     Route: 045
     Dates: start: 20060927
  6. DOXYCYCLINE [Concomitant]
     Indication: MENINGITIS VIRAL
     Dosage: 100 MG, UNK
     Route: 048
  7. DARVOCET [Concomitant]
     Indication: MENINGITIS VIRAL
     Route: 048

REACTIONS (4)
  - Jugular vein thrombosis [None]
  - Transverse sinus thrombosis [None]
  - Cerebral venous thrombosis [None]
  - Superior sagittal sinus thrombosis [Recovering/Resolving]
